FAERS Safety Report 19404721 (Version 15)
Quarter: 2023Q4

REPORT INFORMATION
  Report Type: Spontaneous
  Country: CA (occurrence: CA)
  Receive Date: 20210611
  Receipt Date: 20231230
  Transmission Date: 20240110
  Serious: Yes (Hospitalization, Other)
  Sender: FDA-Public Use
  Company Number: CA-CELLTRION INC.-2021CA008011

PATIENT

DRUGS (18)
  1. INFLECTRA [Suspect]
     Active Substance: INFLIXIMAB-DYYB
     Indication: Colitis ulcerative
     Dosage: 10 MG/KG 0, 2, 6 WEEKS AND THEN Q 8 WEEKS
     Route: 042
     Dates: start: 20210518
  2. INFLECTRA [Suspect]
     Active Substance: INFLIXIMAB-DYYB
     Dosage: 10 MG/KG 0, 2, 6 WEEKS, THEN Q 8 WEEKS
     Route: 042
     Dates: start: 20210523
  3. INFLECTRA [Suspect]
     Active Substance: INFLIXIMAB-DYYB
     Dosage: 5MG/KG, AFTER 7 WEEKS AND 3 DAYS (PRESCRIBED EVERY 4 WEEKS)
     Route: 042
     Dates: start: 20210714
  4. INFLECTRA [Suspect]
     Active Substance: INFLIXIMAB-DYYB
     Dosage: 200 MG ,AT 0, 2, 6 WEEKS THEN Q 8 WEEKS (SUPPOSED TO RECEIVE 5 MG/KG)
     Route: 042
     Dates: start: 20210729
  5. INFLECTRA [Suspect]
     Active Substance: INFLIXIMAB-DYYB
     Dosage: 5 MG/KG, AT 0, 2, 6 WEEKS, THEN Q 8 WEEKS
     Route: 042
     Dates: start: 20210826
  6. INFLECTRA [Suspect]
     Active Substance: INFLIXIMAB-DYYB
     Dosage: 5 MG/KG, AT 0, 2, 6 WEEKS, THEN Q 8 WEEKS
     Route: 042
     Dates: start: 20211021
  7. INFLECTRA [Suspect]
     Active Substance: INFLIXIMAB-DYYB
     Dosage: 5 MG/KG, AT 0, 2, 6 WEEKS, THEN Q 8 WEEKS
     Route: 042
     Dates: start: 20211209
  8. INFLECTRA [Suspect]
     Active Substance: INFLIXIMAB-DYYB
     Dosage: 5 MG/KG, AT 0, 2, 6 WEEKS, THEN Q 8 WEEKS
     Route: 042
     Dates: start: 20220203, end: 20220203
  9. INFLECTRA [Suspect]
     Active Substance: INFLIXIMAB-DYYB
     Dosage: 5 MG/KG, AT 0, 2, 6 WEEKS, THEN Q 8 WEEKS
     Route: 042
     Dates: start: 20220427
  10. INFLECTRA [Suspect]
     Active Substance: INFLIXIMAB-DYYB
     Dosage: 5 MG/KG, AT 0, 2, 6 WEEKS, THEN Q 8 WEEKS
     Route: 042
     Dates: start: 20220526
  11. INFLECTRA [Suspect]
     Active Substance: INFLIXIMAB-DYYB
     Dosage: 5 MG/KG, AT 0, 2, 6 WEEKS, THEN Q 8 WEEKS
     Route: 042
     Dates: start: 20220922
  12. INFLECTRA [Suspect]
     Active Substance: INFLIXIMAB-DYYB
     Dosage: 5 MG/KG, AT 0, 2, 6 WEEKS, THEN Q 8 WEEKS
     Route: 042
     Dates: start: 20221121
  13. INFLECTRA [Suspect]
     Active Substance: INFLIXIMAB-DYYB
     Dosage: 5 MG/KG AT 0, 2, 6 WEEKS, THEN EVERY 8 WEEKS
     Route: 042
     Dates: start: 20230516
  14. INFLECTRA [Suspect]
     Active Substance: INFLIXIMAB-DYYB
     Dosage: 253 MG (5 MG/KG) AFTER 8 WEEKS
     Route: 042
     Dates: start: 20230706
  15. INFLECTRA [Suspect]
     Active Substance: INFLIXIMAB-DYYB
     Dosage: 5 MG/KG AT 0,2,6 WEEKS, THEN EVERY 8 WEEKS
     Route: 042
     Dates: start: 20230831
  16. INFLECTRA [Suspect]
     Active Substance: INFLIXIMAB-DYYB
     Dosage: 5 MG/KG 0,2,6 WEEKS, THEN EVERY 8 WEEKS (255MG, 8 WEEKS)
     Route: 042
     Dates: start: 20231026
  17. INFLECTRA [Suspect]
     Active Substance: INFLIXIMAB-DYYB
     Dosage: 255 MG (5 MG/KG), AFTER 8 WEEKS (PRESCRIBED EVERY 4 WEEKS)
     Route: 042
     Dates: start: 20231221
  18. MESALAMINE [Concomitant]
     Active Substance: MESALAMINE
     Dosage: UNK

REACTIONS (23)
  - Thrombosis [Unknown]
  - Condition aggravated [Recovered/Resolved]
  - Malaise [Unknown]
  - Venous thrombosis [Unknown]
  - Condition aggravated [Recovered/Resolved]
  - Therapeutic response shortened [Unknown]
  - Fatigue [Unknown]
  - Arterial thrombosis [Unknown]
  - Panic reaction [Unknown]
  - Sensory loss [Unknown]
  - Peripheral coldness [Unknown]
  - Alopecia [Not Recovered/Not Resolved]
  - Blood pressure diastolic decreased [Not Recovered/Not Resolved]
  - Dermatitis [Unknown]
  - Weight decreased [Recovering/Resolving]
  - Stress [Not Recovered/Not Resolved]
  - Abdominal distension [Recovering/Resolving]
  - Flatulence [Recovering/Resolving]
  - Malaise [Not Recovered/Not Resolved]
  - Off label use [Unknown]
  - Off label use [Unknown]
  - Incorrect dose administered [Unknown]
  - Inappropriate schedule of product administration [Unknown]

NARRATIVE: CASE EVENT DATE: 20210101
